FAERS Safety Report 4743713-4 (Version None)
Quarter: 2005Q3

REPORT INFORMATION
  Report Type: 
  Country: None (occurrence: None)
  Receive Date: 20050809
  Receipt Date: 20050727
  Transmission Date: 20060218
  Serious: Yes (Hospitalization, Other)
  Sender: FDA-Public Use
  Company Number: HQWYE576827JUL05

PATIENT
  Age: 87 Year
  Sex: Female

DRUGS (5)
  1. CORDARONE [Suspect]
     Indication: ARRHYTHMIA
     Dosage: 200 MG 1X PER 1 DAY ORAL
     Route: 048
     Dates: end: 20050101
  2. FERROUS SULFATE TAB [Concomitant]
  3. STABLON (TIANEPTINE) [Concomitant]
  4. LEVOTHYROXINE SODIUM [Concomitant]
  5. FLECAINIDE ACETATE [Concomitant]

REACTIONS (5)
  - ANOREXIA [None]
  - GENERAL PHYSICAL CONDITION ABNORMAL [None]
  - INFLAMMATION [None]
  - OXYGEN SATURATION DECREASED [None]
  - PNEUMONITIS [None]
